FAERS Safety Report 19719208 (Version 1)
Quarter: 2021Q3

REPORT INFORMATION
  Report Type: Spontaneous
  Country: US (occurrence: US)
  Receive Date: 20210819
  Receipt Date: 20210819
  Transmission Date: 20211014
  Serious: No
  Sender: FDA-Public Use
  Company Number: None

PATIENT
  Age: 68 Year
  Sex: Female
  Weight: 56.25 kg

DRUGS (3)
  1. VENCLEXTA [Suspect]
     Active Substance: VENETOCLAX
     Indication: ACUTE MYELOID LEUKAEMIA
     Dosage: ?          QUANTITY:2 TABLET(S);?
     Route: 048
     Dates: start: 20210201
  2. ONUREG [Concomitant]
     Active Substance: AZACITIDINE
  3. FLECANIDE [Concomitant]
     Active Substance: FLECAINIDE

REACTIONS (1)
  - Alopecia [None]

NARRATIVE: CASE EVENT DATE: 20210601
